FAERS Safety Report 9621131 (Version 1)
Quarter: 2013Q4

REPORT INFORMATION
  Report Type: Spontaneous
  Country: US (occurrence: None)
  Receive Date: 20131011
  Receipt Date: 20131011
  Transmission Date: 20140711
  Serious: No
  Sender: FDA-Public Use
  Company Number: None

PATIENT
  Sex: Female

DRUGS (1)
  1. SUTENT [Suspect]
     Indication: HEPATIC NEOPLASM
     Dosage: 37.5 MG DAILY X 4 WKS, 2 WKS OFF, PO
     Route: 048
     Dates: start: 20130725

REACTIONS (1)
  - Fluid retention [None]
